FAERS Safety Report 9917293 (Version 1)
Quarter: 2014Q1

REPORT INFORMATION
  Report Type: Report from Study
  Country: IT (occurrence: IT)
  Receive Date: 20140221
  Receipt Date: 20140221
  Transmission Date: 20141002
  Serious: Yes (Death)
  Sender: FDA-Public Use
  Company Number: IT-PFIZER INC-2014047850

PATIENT
  Age: 25 Year
  Sex: Male

DRUGS (1)
  1. MITOXANTRONE HCL [Suspect]
     Indication: RELAPSING-REMITTING MULTIPLE SCLEROSIS
     Dosage: 90 MG/M^2 (CUMULATIVE DOSE)
     Route: 042

REACTIONS (1)
  - Acute promyelocytic leukaemia [Fatal]
